FAERS Safety Report 6918587-3 (Version None)
Quarter: 2010Q3

REPORT INFORMATION
  Report Type: 
  Country: None (occurrence: None)
  Receive Date: 20100811
  Receipt Date: 20100805
  Transmission Date: 20110219
  Serious: Yes (Death, Hospitalization, Disabling, Other)
  Sender: FDA-Public Use
  Company Number: CN-BAYER-200943950GPV

PATIENT
  Age: 67 Year
  Sex: Female
  Weight: 52 kg

DRUGS (20)
  1. SORAFENIB [Suspect]
     Indication: HEPATIC NEOPLASM MALIGNANT
     Dosage: TOTAL DAILY DOSE: 800 MG
     Route: 048
     Dates: start: 20091120, end: 20091127
  2. PLACEBO TO ERLOTINIB [Suspect]
     Indication: HEPATIC NEOPLASM MALIGNANT
     Route: 048
     Dates: start: 20091120, end: 20091127
  3. RESERPINE [Concomitant]
     Indication: HYPERTENSION
     Dosage: 2 #
     Route: 048
     Dates: start: 20081101
  4. OXYGEN [Concomitant]
     Indication: PROPHYLAXIS
     Dates: start: 20091129, end: 20091201
  5. FU FANG KU SHEN [Concomitant]
     Indication: HEPATIC NEOPLASM MALIGNANT
     Dates: start: 20091129, end: 20091201
  6. SODIUM CHLORIDE [Concomitant]
     Indication: FLUID REPLACEMENT
     Dates: start: 20091129, end: 20091201
  7. DEXTROSE [Concomitant]
     Dosage: 10%
     Dates: start: 20091129, end: 20091130
  8. DEXTROSE [Concomitant]
     Dosage: 10%
     Dates: start: 20091130, end: 20091130
  9. DEXTROSE [Concomitant]
     Dosage: 10%
     Dates: start: 20091201, end: 20091201
  10. DEXTROSE [Concomitant]
     Dosage: 5%
     Dates: start: 20091129, end: 20091201
  11. DEXTROSE [Concomitant]
     Dosage: 5%
     Dates: start: 20091130, end: 20091130
  12. DEXTROSE [Concomitant]
     Dosage: 50%
     Dates: start: 20091129, end: 20091129
  13. SODIUM BICARBONATE [Concomitant]
     Indication: HYPOCAPNIA
     Dates: start: 20091129, end: 20091129
  14. HUMAN INSULIN [Concomitant]
     Indication: PROPHYLAXIS
     Dates: start: 20091129, end: 20091129
  15. HUMAN INSULIN [Concomitant]
     Dates: start: 20091130, end: 20091130
  16. GLUCOSE W/SODIUM CHLORIDE [Concomitant]
     Indication: FLUID REPLACEMENT
     Dates: start: 20091129, end: 20091129
  17. PLASMA [Concomitant]
     Indication: HAEMOGLOBIN DECREASED
     Dates: start: 20091130, end: 20091130
  18. FU FANG KU SHEN [Concomitant]
  19. INSULIN [Concomitant]
     Indication: PROPHYLAXIS
     Dates: start: 20091129, end: 20091130
  20. CALCIUM GLUCONATE [Concomitant]
     Indication: PROPHYLAXIS
     Dates: start: 20091130

REACTIONS (2)
  - ACUTE HEPATIC FAILURE [None]
  - RENAL FAILURE ACUTE [None]
